FAERS Safety Report 20197720 (Version 1)
Quarter: 2021Q4

REPORT INFORMATION
  Report Type: Spontaneous
  Country: CA (occurrence: CA)
  Receive Date: 20211217
  Receipt Date: 20211217
  Transmission Date: 20220303
  Serious: Yes (Hospitalization)
  Sender: FDA-Public Use
  Company Number: CA-TEVA-2021-CA-1987536

PATIENT
  Age: 67 Year
  Sex: Male
  Weight: 107 kg

DRUGS (19)
  1. CEFADROXIL [Suspect]
     Active Substance: CEFADROXIL
     Dosage: 1000 MILLIGRAM DAILY;
     Route: 065
  2. ACETAMINOPHEN [Concomitant]
     Active Substance: ACETAMINOPHEN
  3. ALLOPURINOL [Concomitant]
     Active Substance: ALLOPURINOL
  4. AZARGA [Concomitant]
     Active Substance: BRINZOLAMIDE\TIMOLOL MALEATE
  5. BISOPROLOL [Concomitant]
     Active Substance: BISOPROLOL
     Route: 065
  6. CALCITRIOL [Concomitant]
     Active Substance: CALCITRIOL
  7. CLONIDINE [Concomitant]
     Active Substance: CLONIDINE
  8. ELIQUIS [Concomitant]
     Active Substance: APIXABAN
  9. FLUTICASONE [Concomitant]
     Active Substance: FLUTICASONE
  10. FUROSEMIDE [Concomitant]
     Active Substance: FUROSEMIDE
  11. INSULIN NOS [Concomitant]
     Active Substance: INSULIN NOS
  12. FERROUS SULFATE ANHYDROUS [Concomitant]
     Active Substance: FERROUS SULFATE ANHYDROUS
  13. MAGNESIUM [Concomitant]
     Active Substance: MAGNESIUM
  14. METOLAZONE [Concomitant]
     Active Substance: METOLAZONE
  15. OLMESARTAN [Concomitant]
     Active Substance: OLMESARTAN
  16. ONGLYZA [Concomitant]
     Active Substance: SAXAGLIPTIN HYDROCHLORIDE
  17. PANTOPRAZOLE [Concomitant]
     Active Substance: PANTOPRAZOLE
  18. ALBUTEROL [Concomitant]
     Active Substance: ALBUTEROL
  19. TERAZOSIN [Concomitant]
     Active Substance: TERAZOSIN HYDROCHLORIDE

REACTIONS (2)
  - Cutaneous vasculitis [Recovered/Resolved]
  - Purpura [Recovered/Resolved]
